FAERS Safety Report 9687244 (Version 2)
Quarter: 2013Q4

REPORT INFORMATION
  Report Type: Spontaneous
  Country: JP (occurrence: JP)
  Receive Date: 20131113
  Receipt Date: 20131212
  Transmission Date: 20140711
  Serious: Yes (Hospitalization, Other)
  Sender: FDA-Public Use
  Company Number: JP-009507513-1311JPN004209

PATIENT
  Sex: Male

DRUGS (1)
  1. GLACTIV [Suspect]
     Route: 048

REACTIONS (1)
  - Autoimmune pancreatitis [Unknown]
